FAERS Safety Report 12447657 (Version 1)
Quarter: 2016Q2

REPORT INFORMATION
  Report Type: Spontaneous
  Country: None (occurrence: None)
  Receive Date: 20160607
  Receipt Date: 20160607
  Transmission Date: 20160815
  Serious: No
  Sender: FDA-Public Use
  Company Number: None

PATIENT
  Age: 49 Year
  Sex: Female
  Weight: 65.32 kg

DRUGS (1)
  1. LEVOTHYROXINE 50MG [Suspect]
     Active Substance: LEVOTHYROXINE
     Indication: HYPOTHYROIDISM
     Route: 048
     Dates: start: 20150428, end: 20160428

REACTIONS (3)
  - Product formulation issue [None]
  - Nausea [None]
  - Pruritus generalised [None]

NARRATIVE: CASE EVENT DATE: 20160428
